FAERS Safety Report 9425762 (Version 1)
Quarter: 2013Q3

REPORT INFORMATION
  Report Type: Spontaneous
  Country: RS (occurrence: RS)
  Receive Date: 20130729
  Receipt Date: 20130729
  Transmission Date: 20140515
  Serious: Yes (Life-Threatening)
  Sender: FDA-Public Use
  Company Number: RS-WATSON-2013-13072

PATIENT
  Age: 49 Year
  Sex: Female

DRUGS (2)
  1. CARBOPLATIN (UNKNOWN) [Suspect]
     Indication: OVARIAN CANCER
     Dosage: UNK
     Route: 042
     Dates: start: 20130702, end: 20130702
  2. GLUCOSE [Concomitant]
     Indication: OVARIAN CANCER
     Route: 065

REACTIONS (6)
  - Hypersensitivity [Recovered/Resolved]
  - Chest discomfort [Recovered/Resolved]
  - Dyspnoea [Recovered/Resolved]
  - Trismus [Recovered/Resolved]
  - Abdominal discomfort [Recovered/Resolved]
  - Defaecation urgency [Recovered/Resolved]
